FAERS Safety Report 4832608-3 (Version None)
Quarter: 2005Q4

REPORT INFORMATION
  Report Type: 
  Country: None (occurrence: None)
  Receive Date: 20051121
  Receipt Date: 20051109
  Transmission Date: 20060501
  Serious: Yes (Hospitalization)
  Sender: FDA-Public Use
  Company Number: US-JNJFOC-20051102746

PATIENT
  Sex: Female

DRUGS (4)
  1. INFLIXIMAB [Suspect]
     Indication: RHEUMATOID ARTHRITIS
     Route: 042
  2. PREDNISONE [Concomitant]
     Dosage: PACKETS IN FEBRUARY, APRIL, AND JUNE.
  3. OXYCONTIN [Concomitant]
  4. DURAGESIC-100 [Concomitant]

REACTIONS (1)
  - BREAST CANCER [None]
